FAERS Safety Report 26060818 (Version 1)
Quarter: 2025Q4

REPORT INFORMATION
  Report Type: Spontaneous
  Country: US (occurrence: US)
  Receive Date: 20251118
  Receipt Date: 20251118
  Transmission Date: 20260118
  Serious: Yes (Hospitalization)
  Sender: TEVA
  Company Number: US-TEVA-VS-3392782

PATIENT

DRUGS (3)
  1. PREDNISONE [Suspect]
     Active Substance: PREDNISONE
     Indication: Contrast media allergy
     Route: 065
  2. IOHEXOL [Suspect]
     Active Substance: IOHEXOL
     Indication: Imaging procedure
     Route: 042
  3. IODIXANOL [Suspect]
     Active Substance: IODIXANOL
     Indication: Imaging procedure
     Route: 065

REACTIONS (2)
  - Drug ineffective [Unknown]
  - Contrast media allergy [Recovered/Resolved]
